FAERS Safety Report 8319022-3 (Version None)
Quarter: 2012Q2

REPORT INFORMATION
  Report Type: 
  Country: None (occurrence: None)
  Receive Date: 20120427
  Receipt Date: 20120418
  Transmission Date: 20120825
  Serious: Yes (Death, Hospitalization)
  Sender: FDA-Public Use
  Company Number: US-ACTELION-A-NJ2012-63048

PATIENT

DRUGS (18)
  1. CARDIZEM CD [Concomitant]
  2. CITALOPRAM HYDROBROMIDE [Concomitant]
  3. TRACLEER [Suspect]
     Indication: PULMONARY ARTERIAL HYPERTENSION
     Dosage: 125 MG, BID
     Route: 048
     Dates: start: 20110805
  4. REVATIO [Concomitant]
  5. ALBUTEROL [Concomitant]
  6. ASPIRIN [Concomitant]
  7. FLUTICASONE PROPIONATE/SALMETEROL [Concomitant]
  8. ASCORBIC ACID [Concomitant]
  9. COUMADIN [Concomitant]
  10. HYDROCODONE BITARTRATE AND ACETAMINOPHEN [Concomitant]
  11. XARELTO [Concomitant]
  12. OXYGEN [Concomitant]
  13. LEVOTHYROXINE SODIUM [Concomitant]
  14. METOPROLOL TARTRATE [Concomitant]
  15. SPIRONOLACTONE [Concomitant]
  16. RYTHMOL [Concomitant]
  17. FUROSEMIDE [Concomitant]
  18. HYDROXYZINE [Concomitant]

REACTIONS (14)
  - TRANSFUSION [None]
  - GASTROINTESTINAL HAEMORRHAGE [None]
  - BLOOD ALKALINE PHOSPHATASE INCREASED [None]
  - RENAL FAILURE ACUTE [None]
  - INFECTION [None]
  - DYSPNOEA [None]
  - HAEMORRHAGIC ANAEMIA [None]
  - RESPIRATORY FAILURE [None]
  - HYPOTHYROIDISM [None]
  - NASOPHARYNGITIS [None]
  - DEATH [None]
  - ASPARTATE AMINOTRANSFERASE INCREASED [None]
  - ALANINE AMINOTRANSFERASE INCREASED [None]
  - ESSENTIAL HYPERTENSION [None]
